FAERS Safety Report 17080200 (Version 1)
Quarter: 2019Q4

REPORT INFORMATION
  Report Type: Spontaneous
  Country: US (occurrence: US)
  Receive Date: 20191029
  Receipt Date: 20191029
  Transmission Date: 20200122
  Serious: Yes (Hospitalization)
  Sender: FDA-Public Use
  Company Number: None

PATIENT
  Age: 39 Year
  Sex: Female

DRUGS (10)
  1. BUDESONIDE. [Concomitant]
     Active Substance: BUDESONIDE
  2. CLOMIPHENE [Concomitant]
     Active Substance: CLOMIPHENE
  3. MICROZIDE [Concomitant]
     Active Substance: HYDROCHLOROTHIAZIDE
  4. SERTRALINE [Concomitant]
     Active Substance: SERTRALINE HYDROCHLORIDE
  5. FLOVENT [Concomitant]
     Active Substance: FLUTICASONE PROPIONATE
  6. OMEPRAZOLE. [Concomitant]
     Active Substance: OMEPRAZOLE
  7. PROMETRIUM [Concomitant]
     Active Substance: PROGESTERONE
  8. TIZANIDINE. [Concomitant]
     Active Substance: TIZANIDINE
  9. REMICADE [Suspect]
     Active Substance: INFLIXIMAB
     Indication: CROHN^S DISEASE
     Dosage: ?          OTHER FREQUENCY:EVERY8WEEKS ;?
     Route: 042
     Dates: start: 20140826
  10. XIIDRA [Concomitant]
     Active Substance: LIFITEGRAST

REACTIONS (2)
  - Abdominal pain lower [None]
  - Crohn^s disease [None]

NARRATIVE: CASE EVENT DATE: 20191023
